FAERS Safety Report 9854682 (Version 1)
Quarter: 2014Q1

REPORT INFORMATION
  Report Type: Spontaneous
  Country: US (occurrence: US)
  Receive Date: 20140130
  Receipt Date: 20140130
  Transmission Date: 20141002
  Serious: Yes (Other)
  Sender: FDA-Public Use
  Company Number: US-BRISTOL-MYERS SQUIBB COMPANY-20053245

PATIENT
  Age: 55 Year
  Sex: Male
  Weight: 120.18 kg

DRUGS (6)
  1. ABILIFY [Suspect]
     Indication: DEPRESSION
     Dates: start: 2003
  2. DILTIAZEM ER [Concomitant]
  3. FUROSEMIDE [Concomitant]
  4. DOXAZOSIN [Concomitant]
     Indication: PROSTATIC DISORDER
  5. PANTOPRAZOLE [Concomitant]
  6. GLIPIZIDE [Concomitant]
     Indication: DIABETES MELLITUS

REACTIONS (11)
  - Cerebrovascular accident [Unknown]
  - Obesity [Unknown]
  - Neuroleptic malignant syndrome [Unknown]
  - Delusion [Unknown]
  - Convulsion [Unknown]
  - Headache [Unknown]
  - White blood cell count decreased [Unknown]
  - Faecal incontinence [Unknown]
  - Dyspnoea [Unknown]
  - Flashback [Unknown]
  - Somnolence [Unknown]
